FAERS Safety Report 14440536 (Version 1)
Quarter: 2018Q1

REPORT INFORMATION
  Report Type: Spontaneous
  Country: US (occurrence: US)
  Receive Date: 20180125
  Receipt Date: 20180125
  Transmission Date: 20180509
  Serious: No
  Sender: FDA-Public Use
  Company Number: US-ABBVIE-17K-163-1982681-00

PATIENT

DRUGS (2)
  1. ENTYVIO [Suspect]
     Active Substance: VEDOLIZUMAB
     Indication: CROHN^S DISEASE
     Route: 065
  2. HUMIRA [Suspect]
     Active Substance: ADALIMUMAB
     Indication: CROHN^S DISEASE
     Route: 058

REACTIONS (8)
  - Rhinitis [Unknown]
  - Arthralgia [Unknown]
  - Furuncle [Unknown]
  - Skin papilloma [Unknown]
  - Immune system disorder [Unknown]
  - Injection site pruritus [Unknown]
  - Drug effect incomplete [Unknown]
  - Drug ineffective [Unknown]
